FAERS Safety Report 25730336 (Version 1)
Quarter: 2025Q3

REPORT INFORMATION
  Report Type: Spontaneous
  Country: EU (occurrence: EU)
  Receive Date: 20250827
  Receipt Date: 20250827
  Transmission Date: 20251020
  Serious: Yes (Other)
  Sender: NOVARTIS
  Company Number: EU-KRKA-ES2025K15040LIT

PATIENT
  Age: 30 Year
  Sex: Male

DRUGS (4)
  1. EVEROLIMUS [Suspect]
     Active Substance: EVEROLIMUS
     Indication: Immunosuppressant drug therapy
     Route: 065
  2. TOZINAMERAN [Suspect]
     Active Substance: TOZINAMERAN
     Indication: COVID-19
     Route: 065
     Dates: start: 20210713
  3. TOZINAMERAN [Suspect]
     Active Substance: TOZINAMERAN
     Route: 065
     Dates: start: 20210803
  4. TACROLIMUS [Concomitant]
     Active Substance: TACROLIMUS
     Indication: Immunosuppressant drug therapy
     Route: 065

REACTIONS (1)
  - IgA nephropathy [Not Recovered/Not Resolved]
